FAERS Safety Report 25745976 (Version 1)
Quarter: 2025Q3

REPORT INFORMATION
  Report Type: Report from Study
  Country: CO (occurrence: CO)
  Receive Date: 20250901
  Receipt Date: 20250901
  Transmission Date: 20251021
  Serious: Yes (Other)
  Sender: TAKEDA
  Company Number: CO-TAKEDA-2025TUS076492

PATIENT
  Age: 28 Year
  Sex: Male
  Weight: 96 kg

DRUGS (1)
  1. VEDOLIZUMAB [Suspect]
     Active Substance: VEDOLIZUMAB
     Indication: Colitis ulcerative

REACTIONS (6)
  - Haematochezia [Unknown]
  - Mucous stools [Unknown]
  - Bladder pain [Unknown]
  - Pallor [Unknown]
  - Localised oedema [Unknown]
  - Nausea [Unknown]

NARRATIVE: CASE EVENT DATE: 20250818
